FAERS Safety Report 4718831-7 (Version None)
Quarter: 2005Q3

REPORT INFORMATION
  Report Type: 
  Country: None (occurrence: None)
  Receive Date: 20050719
  Receipt Date: 20050708
  Transmission Date: 20060218
  Serious: Yes (Hospitalization)
  Sender: FDA-Public Use
  Company Number: KII-2005-0017469

PATIENT
  Age: 61 Year
  Sex: Female

DRUGS (1)
  1. MORPHINE SULFATE [Suspect]
     Indication: PAIN
     Dosage: 600 MG, ORAL
     Route: 048

REACTIONS (3)
  - INCORRECT DOSE ADMINISTERED [None]
  - OVERDOSE [None]
  - SOMNOLENCE [None]
